FAERS Safety Report 19525542 (Version 1)
Quarter: 2021Q3

REPORT INFORMATION
  Report Type: Spontaneous
  Country: US (occurrence: US)
  Receive Date: 20210713
  Receipt Date: 20210713
  Transmission Date: 20211014
  Serious: No
  Sender: FDA-Public Use
  Company Number: None

PATIENT
  Age: 57 Year
  Sex: Male

DRUGS (1)
  1. TEMOZOLOMIDE CAP 100MG [Suspect]
     Active Substance: TEMOZOLOMIDE
     Dosage: ?          OTHER DOSE:40;OTHER FREQUENCY:OTHER;?
     Route: 048
     Dates: start: 202009

REACTIONS (1)
  - Disease progression [None]

NARRATIVE: CASE EVENT DATE: 20210622
